FAERS Safety Report 16484102 (Version 1)
Quarter: 2019Q3

REPORT INFORMATION
  Report Type: Spontaneous
  Country: US (occurrence: US)
  Receive Date: 20190625
  Receipt Date: 20190625
  Transmission Date: 20191004
  Serious: Yes (Other)
  Sender: FDA-Public Use
  Company Number: None

PATIENT
  Age: 26 Year
  Sex: Female
  Weight: 67.5 kg

DRUGS (2)
  1. MULTIVITAMIN [Concomitant]
     Active Substance: VITAMINS
  2. CIPROFLOXACIN. [Suspect]
     Active Substance: CIPROFLOXACIN
     Indication: URINARY TRACT INFECTION
     Dates: start: 20120510, end: 20120510

REACTIONS (7)
  - Delirium [None]
  - Bradykinesia [None]
  - Metamorphopsia [None]
  - Disorientation [None]
  - Amnesia [None]
  - Adverse drug reaction [None]
  - Sensory disturbance [None]

NARRATIVE: CASE EVENT DATE: 20120510
